FAERS Safety Report 9164732 (Version 1)
Quarter: 2013Q1

REPORT INFORMATION
  Report Type: Spontaneous
  Country: US (occurrence: US)
  Receive Date: 20130315
  Receipt Date: 20130315
  Transmission Date: 20140127
  Serious: No
  Sender: FDA-Public Use
  Company Number: US-PFIZER INC-2013082198

PATIENT
  Age: 36 Month
  Sex: Female

DRUGS (1)
  1. ADVIL [Suspect]
     Dosage: 600MG (3 TABLETS OF 200MG), ONCE
     Route: 048
     Dates: start: 20130309, end: 20130309

REACTIONS (2)
  - Accidental exposure to product by child [Unknown]
  - Vomiting [Unknown]
